FAERS Safety Report 24130619 (Version 1)
Quarter: 2024Q3

REPORT INFORMATION
  Report Type: Spontaneous
  Country: IT (occurrence: IT)
  Receive Date: 20240724
  Receipt Date: 20240724
  Transmission Date: 20241017
  Serious: Yes (Hospitalization)
  Sender: AUROBINDO
  Company Number: IT-JNJFOC-20240720833

PATIENT
  Age: 72 Year
  Sex: Male
  Weight: 70 kg

DRUGS (10)
  1. LEVOLEUCOVORIN [Suspect]
     Active Substance: LEVOLEUCOVORIN
     Indication: HER2 positive colorectal cancer
     Dosage: 200 MILLIGRAM/SQ. METER (200 MG/M2 EVERY 2 WEEKS ON DAYS 1, 15 AND 29 OF EACH 6-WEEK CYCLE)
     Route: 042
     Dates: start: 20240523, end: 20240618
  2. OXALIPLATIN [Suspect]
     Active Substance: OXALIPLATIN
     Indication: HER2 positive colorectal cancer
     Dosage: 85 MILLIGRAM/SQ. METER (85 MG/M2 EVERY 2 WEEKS ON DAYS 1, 15 AND 29 OF EACH 6-WEEK (42-DAY) CYCLE)
     Route: 042
     Dates: start: 20240523, end: 20240618
  3. FLUOROURACIL [Suspect]
     Active Substance: FLUOROURACIL
     Indication: HER2 positive colorectal cancer
     Dosage: 400 MILLIGRAM/SQ. METER (400 MG/M2 IV BOLUS, THEN 2400 MG/M2 (IV OVER 46-48 HOURS) EVERY 2 WEEKS ON
     Route: 042
     Dates: start: 20240523, end: 20240618
  4. FLUOROURACIL [Suspect]
     Active Substance: FLUOROURACIL
     Dosage: 2400 MILLIGRAM/SQ. METER, 2 WEEKS (2400 MG/M2 (IV OVER 46-48 HOURS) EVERY 2 WEEKS ON DAYS 1, 15 AND
     Route: 042
     Dates: start: 20240618
  5. LOPERAMIDE HYDROCHLORIDE [Suspect]
     Active Substance: LOPERAMIDE HYDROCHLORIDE
     Indication: HER2 positive colorectal cancer
     Dosage: 4 MILLIGRAM, TWO TIMES A DAY 0.33 DAYS(4 MG THREE TIMES DAILY (DAYS 1 TO 14) FOLLOWED BY 4 MG TWICE
     Route: 065
     Dates: start: 20240523, end: 20240605
  6. LOPERAMIDE HYDROCHLORIDE [Suspect]
     Active Substance: LOPERAMIDE HYDROCHLORIDE
     Dosage: 4 MILLIGRAM, 3 TIMES A DAY, 0.5  DAYS (4 MG THREE TIMES DAILY (DAYS 1 TO 14) FOLLOWED BY 4 MG TWICE
     Route: 065
     Dates: start: 20240606
  7. TRASTUZUMAB [Suspect]
     Active Substance: TRASTUZUMAB
     Indication: HER2 positive colorectal cancer
     Dosage: 8 MILLIGRAM/KILOGRAM (8 MG/KG ON DAY 1 OF EVERY 3 WEEKS (Q3W) (SINGLE LOADING DOSE 8 MG/KG IV ON C1
     Route: 042
     Dates: start: 20240523, end: 20240523
  8. TUCATINIB [Suspect]
     Active Substance: TUCATINIB
     Indication: HER2 positive colorectal cancer
     Dosage: 300 MILLIGRAM, 0.5 DAYS
     Route: 048
     Dates: start: 20240523, end: 20240623
  9. EMPAGLIFLOZIN [Concomitant]
     Active Substance: EMPAGLIFLOZIN
     Indication: Product used for unknown indication
     Dosage: UNK
     Route: 065
     Dates: start: 2014
  10. METFORMIN [Concomitant]
     Active Substance: METFORMIN HYDROCHLORIDE
     Indication: Product used for unknown indication
     Dosage: UNK
     Route: 065
     Dates: start: 2014

REACTIONS (3)
  - Blood creatinine increased [Recovered/Resolved]
  - Off label use [Unknown]
  - Nausea [Unknown]

NARRATIVE: CASE EVENT DATE: 20240523
